FAERS Safety Report 8314272-4 (Version None)
Quarter: 2012Q2

REPORT INFORMATION
  Report Type: 
  Country: None (occurrence: None)
  Receive Date: 20120424
  Receipt Date: 20120413
  Transmission Date: 20120825
  Serious: Yes (Hospitalization)
  Sender: FDA-Public Use
  Company Number: B0795897A

PATIENT
  Age: 15 Year
  Sex: Male

DRUGS (1)
  1. BUPROPION HCL [Suspect]
     Indication: DEPRESSION
     Dosage: 150 MG/PER DAY//

REACTIONS (9)
  - SELECTIVE MUTISM [None]
  - PSYCHOTIC DISORDER [None]
  - SOCIAL AVOIDANT BEHAVIOUR [None]
  - UNEVALUABLE EVENT [None]
  - DELUSION [None]
  - SUSPICIOUSNESS [None]
  - POOR PERSONAL HYGIENE [None]
  - HYPOPHAGIA [None]
  - CATATONIA [None]
